FAERS Safety Report 4567784-3 (Version None)
Quarter: 2005Q1

REPORT INFORMATION
  Report Type: 
  Country: None (occurrence: None)
  Receive Date: 20050127
  Receipt Date: 20050114
  Transmission Date: 20050727
  Serious: Yes (Hospitalization, Congenital Anomaly)
  Sender: FDA-Public Use
  Company Number: 2005014292

PATIENT
  Age: 1 Day

DRUGS (3)
  1. ALPRAZOLAM [Suspect]
     Indication: ILL-DEFINED DISORDER
     Dosage: 2.4 MG
  2. ETIZOLAM (ETIZOLAM) [Suspect]
     Indication: ILL-DEFINED DISORDER
     Dosage: 3 MG
  3. MAPROTILINE HYDROCHLORIDE [Suspect]
     Indication: ILL-DEFINED DISORDER
     Dosage: 3 MG

REACTIONS (3)
  - DRUG EXPOSURE DURING PREGNANCY [None]
  - NEONATAL DISORDER [None]
  - RHABDOMYOLYSIS [None]
